FAERS Safety Report 8103224-5 (Version None)
Quarter: 2012Q1

REPORT INFORMATION
  Report Type: 
  Country: None (occurrence: None)
  Receive Date: 20120201
  Receipt Date: 20120125
  Transmission Date: 20120608
  Serious: Yes (Hospitalization)
  Sender: FDA-Public Use
  Company Number: US-JNJFOC-20120111594

PATIENT
  Sex: Female
  Weight: 65.77 kg

DRUGS (6)
  1. ELMIRON [Suspect]
     Indication: CYSTITIS INTERSTITIAL
     Route: 048
     Dates: start: 20090101
  2. LIPITOR [Suspect]
     Indication: BLOOD CHOLESTEROL INCREASED
     Route: 048
     Dates: start: 20120101, end: 20120101
  3. SYNTHROID [Concomitant]
     Indication: HYPOTHYROIDISM
     Dosage: 100 MG AND 150 MG/TABLET/1 TABLET FOR 5 DAYS AND 1 IN A HALF TABLETS 2 DAYS/ORAL
     Route: 048
  4. OMEPRAZOLE [Concomitant]
     Indication: GASTROOESOPHAGEAL REFLUX DISEASE
     Route: 048
  5. DILANTIN [Concomitant]
     Indication: CONVULSION
     Route: 048
  6. GABAPENTIN [Concomitant]
     Indication: PAIN
     Route: 048

REACTIONS (5)
  - HEADACHE [None]
  - CHEST PAIN [None]
  - BLOOD CHOLESTEROL INCREASED [None]
  - DIZZINESS [None]
  - HYPERTENSION [None]
